FAERS Safety Report 7575642-5 (Version None)
Quarter: 2011Q2

REPORT INFORMATION
  Report Type: 
  Country: None (occurrence: None)
  Receive Date: 20110628
  Receipt Date: 20110616
  Transmission Date: 20111010
  Serious: Yes (Death, Hospitalization)
  Sender: FDA-Public Use
  Company Number: US-AMGEN-USASP2011023417

PATIENT
  Sex: Male

DRUGS (6)
  1. REVLIMID [Concomitant]
  2. ALTERNAGEL                         /00057401/ [Concomitant]
  3. XGEVA [Suspect]
     Indication: MULTIPLE MYELOMA
     Dosage: 120 MG, UNK
     Dates: start: 20110413
  4. NEULASTA [Suspect]
     Indication: PRODUCT USED FOR UNKNOWN INDICATION
     Dosage: UNK
  5. VELCADE [Concomitant]
  6. BENDAMUSTINE [Concomitant]

REACTIONS (3)
  - GRAND MAL CONVULSION [None]
  - METASTATIC NEOPLASM [None]
  - HYPOCALCAEMIA [None]
